FAERS Safety Report 17593528 (Version 1)
Quarter: 2020Q1

REPORT INFORMATION
  Report Type: Report from Study
  Country: US (occurrence: US)
  Receive Date: 20200327
  Receipt Date: 20200327
  Transmission Date: 20200409
  Serious: Yes (Death, Other)
  Sender: FDA-Public Use
  Company Number: US-PFIZER INC-2020065144

PATIENT
  Age: 62 Year
  Sex: Female

DRUGS (2)
  1. IBRANCE [Suspect]
     Active Substance: PALBOCICLIB
     Indication: BREAST CANCER FEMALE
     Dosage: 125 MG, CYCLIC (DAILY 21 DAYS ON, 7 OFF)
     Route: 048
     Dates: start: 20191127
  2. FASLODEX [Suspect]
     Active Substance: FULVESTRANT
     Dosage: UNK
     Route: 030

REACTIONS (10)
  - Sputum discoloured [Unknown]
  - Asthenia [Unknown]
  - Fatigue [Unknown]
  - Taste disorder [Unknown]
  - Headache [Unknown]
  - Oral discomfort [Unknown]
  - Death [Fatal]
  - Cough [Unknown]
  - Oral candidiasis [Unknown]
  - Weight decreased [Recovered/Resolved]

NARRATIVE: CASE EVENT DATE: 20200318
